FAERS Safety Report 10451801 (Version 10)
Quarter: 2014Q4

REPORT INFORMATION
  Report Type: Spontaneous
  Country: US (occurrence: US)
  Receive Date: 20140915
  Receipt Date: 20141219
  Transmission Date: 20150528
  Serious: Yes (Hospitalization)
  Sender: FDA-Public Use
  Company Number: US-UNITED THERAPEUTICS-UNT-2014-006495

PATIENT
  Age: 68 Year
  Sex: Female
  Weight: 122.45 kg

DRUGS (5)
  1. TYVASO [Suspect]
     Active Substance: TREPROSTINIL
     Dosage: 54 ?G, QID
     Dates: start: 20140812
  2. TYVASO [Suspect]
     Active Substance: TREPROSTINIL
     Dosage: 54 ?G, QID
     Dates: start: 20140812
  3. TYVASO [Suspect]
     Active Substance: TREPROSTINIL
     Indication: PULMONARY HYPERTENSION
     Dosage: 18-54 MCG, QID
     Dates: start: 20140812
  4. TYVASO [Suspect]
     Active Substance: TREPROSTINIL
     Dosage: 54 ?G, QID
     Dates: start: 20140812
  5. TYVASO [Suspect]
     Active Substance: TREPROSTINIL
     Indication: COR PULMONALE CHRONIC
     Dosage: 54 ?G, QID
     Dates: start: 20140812

REACTIONS (9)
  - Fluid retention [Not Recovered/Not Resolved]
  - Stomatitis [Unknown]
  - Cardiac disorder [Recovering/Resolving]
  - Cough [Unknown]
  - Drug dose omission [Unknown]
  - Nausea [Unknown]
  - Dyspnoea exertional [Not Recovered/Not Resolved]
  - Pulmonary arterial hypertension [Unknown]
  - Renal disorder [Recovering/Resolving]

NARRATIVE: CASE EVENT DATE: 2014
